FAERS Safety Report 23890720 (Version 1)
Quarter: 2024Q2

REPORT INFORMATION
  Report Type: Spontaneous
  Country: TW (occurrence: TW)
  Receive Date: 20240523
  Receipt Date: 20240523
  Transmission Date: 20240715
  Serious: Yes (Hospitalization)
  Sender: FDA-Public Use
  Company Number: TW-BAYER-2024A061266

PATIENT
  Age: 64 Year
  Sex: Male

DRUGS (1)
  1. XOFIGO [Suspect]
     Active Substance: RADIUM RA-223 DICHLORIDE
     Dosage: 5 INJECTIONS
     Dates: start: 20231123, end: 20240411

REACTIONS (2)
  - Cerebral haemorrhage [None]
  - Platelet count decreased [None]
